FAERS Safety Report 8080879-5 (Version None)
Quarter: 2012Q1

REPORT INFORMATION
  Report Type: 
  Country: None (occurrence: None)
  Receive Date: 20120130
  Receipt Date: 20120124
  Transmission Date: 20120608
  Serious: Yes (Death, Other)
  Sender: FDA-Public Use
  Company Number: US-BAYER-2012-008946

PATIENT
  Sex: Female

DRUGS (9)
  1. ANAPROX [Concomitant]
     Dosage: UNK
     Dates: start: 20100202
  2. YASMIN [Suspect]
  3. LISINOPRIL [Concomitant]
     Dosage: 20 MG, QD
     Route: 048
  4. YAZ [Suspect]
  5. FLEXERIL [Concomitant]
     Dosage: 10 MG, TID AS NEEDED
     Route: 048
  6. LORTAB [Concomitant]
     Dosage: UNK
     Dates: start: 20100202
  7. LISINOPRIL HYDROCHLORTHIAZID [Concomitant]
     Dosage: 20 MG, QD
     Route: 048
  8. PHENERGAN [Concomitant]
     Dosage: 25 MG, UNK
     Route: 030
     Dates: start: 20100202
  9. DEMEROL [Concomitant]
     Dosage: 75 MG, UNK
     Route: 030
     Dates: start: 20100202

REACTIONS (6)
  - PULMONARY EMBOLISM [None]
  - PAIN IN EXTREMITY [None]
  - CHEST PAIN [None]
  - DEEP VEIN THROMBOSIS [None]
  - RESPIRATORY ARREST [None]
  - CARDIAC ARREST [None]
